FAERS Safety Report 13568800 (Version 2)
Quarter: 2017Q4

REPORT INFORMATION
  Report Type: Spontaneous
  Country: CH (occurrence: CH)
  Receive Date: 20170522
  Receipt Date: 20171031
  Transmission Date: 20180320
  Serious: Yes (Hospitalization, Other)
  Sender: FDA-Public Use
  Company Number: CH-BAYER-2017-094721

PATIENT
  Sex: Female

DRUGS (3)
  1. OCTREOTIDE. [Suspect]
     Active Substance: OCTREOTIDE
     Indication: MENINGIOMA
     Dates: start: 2011
  2. SANDOSTATIN [Suspect]
     Active Substance: OCTREOTIDE ACETATE
     Indication: MENINGIOMA
     Dosage: .1 MG, TID
     Route: 058
  3. NEXAVAR [Suspect]
     Active Substance: SORAFENIB
     Indication: MENINGIOMA
     Dosage: UNK
     Dates: start: 2011

REACTIONS (6)
  - Encephalomyelitis [Unknown]
  - Paraesthesia [Not Recovered/Not Resolved]
  - Meningioma [Unknown]
  - Hepatic enzyme increased [None]
  - Demyelination [Unknown]
  - Central nervous system inflammation [Unknown]

NARRATIVE: CASE EVENT DATE: 2011
